FAERS Safety Report 6213188-7 (Version None)
Quarter: 2009Q2

REPORT INFORMATION
  Report Type: 
  Country: None (occurrence: None)
  Receive Date: 20090601
  Receipt Date: 20090601
  Transmission Date: 20091009
  Serious: Yes (Other)
  Sender: FDA-Public Use
  Company Number: None

PATIENT
  Age: 52 Year
  Sex: Female
  Weight: 58.9676 kg

DRUGS (1)
  1. BONIVA [Suspect]
     Indication: OSTEOPENIA
     Dosage: 150 MG MONTHLY PO
     Route: 048
     Dates: start: 20090530, end: 20090530

REACTIONS (8)
  - ARTHRALGIA [None]
  - BONE PAIN [None]
  - DYSPEPSIA [None]
  - INFLUENZA LIKE ILLNESS [None]
  - MALAISE [None]
  - MYALGIA [None]
  - OROPHARYNGEAL PAIN [None]
  - PAIN IN JAW [None]
